FAERS Safety Report 5604717-2 (Version None)
Quarter: 2008Q1

REPORT INFORMATION
  Report Type: 
  Country: None (occurrence: None)
  Receive Date: 20080128
  Receipt Date: 20080117
  Transmission Date: 20080703
  Serious: Yes (Other)
  Sender: FDA-Public Use
  Company Number: ES-JNJFOC-20071003209

PATIENT
  Age: 17 Year
  Sex: Female

DRUGS (4)
  1. TRAMADOL HCL [Suspect]
     Route: 048
  2. TRAMADOL HCL [Suspect]
     Indication: ABDOMINAL PAIN
     Route: 048
  3. HYOSCINE HBR HYT [Suspect]
     Indication: DRUG USE FOR UNKNOWN INDICATION
     Route: 065
  4. TRAMADOL HCL [Suspect]
     Route: 042

REACTIONS (2)
  - ACUTE PSYCHOSIS [None]
  - CHOREA [None]
